FAERS Safety Report 9214062 (Version 2)
Quarter: 2013Q2

REPORT INFORMATION
  Report Type: Spontaneous
  Country: US (occurrence: US)
  Receive Date: 20130405
  Receipt Date: 20130508
  Transmission Date: 20140414
  Serious: No
  Sender: FDA-Public Use
  Company Number: US-PFIZER INC-2013107268

PATIENT
  Age: 66 Year
  Sex: Female
  Weight: 74.38 kg

DRUGS (3)
  1. LYRICA [Suspect]
     Indication: BURNING FEET SYNDROME
     Dosage: 25 MG, 3X/DAY
     Dates: start: 201303
  2. LYRICA [Suspect]
     Indication: NERVE COMPRESSION
     Dosage: UNK
  3. AMITIZA [Suspect]
     Indication: CONSTIPATION
     Dosage: UNK

REACTIONS (10)
  - Drug ineffective [Unknown]
  - Constipation [Unknown]
  - Anaemia [Unknown]
  - Somnolence [Unknown]
  - Fatigue [Unknown]
  - Balance disorder [Unknown]
  - Fall [Unknown]
  - Asthenia [Unknown]
  - Malaise [Unknown]
  - Drug intolerance [Unknown]
